FAERS Safety Report 16330372 (Version 1)
Quarter: 2019Q2

REPORT INFORMATION
  Report Type: Report from Study
  Country: UG (occurrence: UG)
  Receive Date: 20190520
  Receipt Date: 20190520
  Transmission Date: 20190711
  Serious: Yes (Other)
  Sender: FDA-Public Use
  Company Number: UG-ROCHE-2317655

PATIENT

DRUGS (1)
  1. DIAZEPAM. [Suspect]
     Active Substance: DIAZEPAM
     Indication: INDUCTION OF ANAESTHESIA
     Dosage: MULTIPLES OF 5 MG DOSES TILL DESIRED RESULT NECESSARY FOR THE DIRECT-CURRENT SHOCK.
     Route: 042

REACTIONS (1)
  - Apnoea [Recovered/Resolved]
